FAERS Safety Report 23116979 (Version 1)
Quarter: 2023Q4

REPORT INFORMATION
  Report Type: Spontaneous
  Country: US (occurrence: None)
  Receive Date: 20231027
  Receipt Date: 20231027
  Transmission Date: 20240109
  Serious: Yes (Other)
  Sender: FDA-Public Use
  Company Number: None

PATIENT
  Age: 67 Year
  Sex: Female
  Weight: 69.75 kg

DRUGS (15)
  1. MOTEGRITY [Suspect]
     Active Substance: PRUCALOPRIDE SUCCINATE
     Indication: Impaired gastric emptying
     Dates: start: 20230912, end: 20230922
  2. KEPPRA [Concomitant]
     Active Substance: LEVETIRACETAM
  3. omeprole [Concomitant]
  4. LOSARTAN [Concomitant]
     Active Substance: LOSARTAN
  5. sesamstatin [Concomitant]
  6. al pin [Concomitant]
  7. GABAPENTIN [Concomitant]
     Active Substance: GABAPENTIN
  8. ASPIRIN [Concomitant]
     Active Substance: ASPIRIN
  9. VITA D3 [Concomitant]
  10. VITAMINS [Concomitant]
     Active Substance: VITAMINS
  11. HERBALS [Concomitant]
     Active Substance: HERBALS
  12. macuhealth [Concomitant]
  13. MAGNESIUM [Concomitant]
     Active Substance: MAGNESIUM
  14. ALIGN [Concomitant]
     Active Substance: BIFIDOBACTERIUM LONGUM SUBSP. INFANTIS
  15. CRANBERRY [Concomitant]
     Active Substance: CRANBERRY

REACTIONS (5)
  - Rash [None]
  - Rash [None]
  - Paraesthesia [None]
  - Arthralgia [None]
  - Gait disturbance [None]

NARRATIVE: CASE EVENT DATE: 20230922
